FAERS Safety Report 10032400 (Version 1)
Quarter: 2014Q1

REPORT INFORMATION
  Report Type: Spontaneous
  Country: GB (occurrence: None)
  Receive Date: 20140320
  Receipt Date: 20140320
  Transmission Date: 20141002
  Serious: Yes (Life-Threatening, Hospitalization)
  Sender: FDA-Public Use
  Company Number: FK201400887

PATIENT
  Age: 54 Year
  Sex: Male

DRUGS (7)
  1. GEMCITABINE (GEMCITABINE) [Suspect]
     Indication: PRODUCT USED FOR UNKNOWN INDICATION
     Route: 042
  2. IFOSFAMIDE (IFOSFAMIDE) [Suspect]
     Indication: PRODUCT USED FOR UNKNOWN INDICATION
     Route: 042
  3. MABTHERA [Suspect]
     Indication: PRODUCT USED FOR UNKNOWN INDICATION
     Route: 042
  4. VINORELBINE [Suspect]
     Indication: PRODUCT USED FOR UNKNOWN INDICATION
     Route: 042
  5. ACICLOVIR (ACICLOVIR) [Concomitant]
  6. ALLOPURINOL (ALLOPURINOL) [Concomitant]
  7. CO-TRIMOXAZOLE (CO-TRIMOXAZOLE) [Concomitant]

REACTIONS (2)
  - Hypophosphataemia [None]
  - Neutropenic sepsis [None]
